FAERS Safety Report 20554382 (Version 1)
Quarter: 2022Q1

REPORT INFORMATION
  Report Type: Spontaneous
  Country: US (occurrence: US)
  Receive Date: 20220304
  Receipt Date: 20220304
  Transmission Date: 20220423
  Serious: No
  Sender: FDA-Public Use
  Company Number: US-PFIZER INC-2021861604

PATIENT
  Age: 75 Year
  Sex: Female

DRUGS (1)
  1. XELJANZ XR [Suspect]
     Active Substance: TOFACITINIB CITRATE
     Indication: Rheumatoid arthritis
     Dosage: 11 MG, 1X/DAY
     Route: 048
     Dates: start: 20200317

REACTIONS (4)
  - Dry eye [Not Recovered/Not Resolved]
  - Pollakiuria [Recovered/Resolved]
  - Vulvovaginal pain [Recovered/Resolved]
  - Urinary tract infection [Recovered/Resolved]
